FAERS Safety Report 5969716-X (Version None)
Quarter: 2008Q4

REPORT INFORMATION
  Report Type: 
  Country: None (occurrence: None)
  Receive Date: 20081126
  Receipt Date: 20081121
  Transmission Date: 20090506
  Serious: Yes (Hospitalization)
  Sender: FDA-Public Use
  Company Number: US-PFIZER INC-2008087270

PATIENT
  Sex: Male
  Weight: 101.2 kg

DRUGS (10)
  1. PRAZSOIN HCL [Suspect]
     Route: 048
     Dates: start: 20070101
  2. CELECOXIB [Suspect]
     Indication: OSTEOARTHRITIS
     Dosage: FREQ:FREQUENCY: BID; INTERVAL: DAILY
     Route: 048
     Dates: start: 20080607, end: 20080811
  3. ACETYLSALICYLIC ACID SRT [Concomitant]
     Route: 048
     Dates: start: 20030101
  4. BENAZEPRIL HYDROCHLORIDE [Concomitant]
     Route: 048
     Dates: start: 20030101
  5. METOPROLOL TARTRATE [Concomitant]
     Route: 048
     Dates: start: 20030101
  6. LOVASTATIN [Concomitant]
     Route: 048
     Dates: start: 20080429
  7. HYDROCHLOROTHIAZIDE [Concomitant]
     Route: 048
     Dates: start: 20070726
  8. MULTI-VITAMINS [Concomitant]
     Route: 048
     Dates: start: 20050101
  9. DIPHENHYDRAMINE HCL [Concomitant]
     Route: 048
     Dates: start: 20050101
  10. PSYLLIUM [Concomitant]
     Route: 048
     Dates: start: 20050101

REACTIONS (3)
  - CHEST PAIN [None]
  - COSTOCHONDRITIS [None]
  - HYPOTENSION [None]
